FAERS Safety Report 15745232 (Version 1)
Quarter: 2018Q4

REPORT INFORMATION
  Report Type: Spontaneous
  Country: ES (occurrence: ES)
  Receive Date: 20181220
  Receipt Date: 20181220
  Transmission Date: 20190205
  Serious: Yes (Hospitalization)
  Sender: FDA-Public Use
  Company Number: ES-PFIZER INC-2018517905

PATIENT
  Age: 29 Year
  Sex: Female

DRUGS (3)
  1. SULFASALAZINE. [Suspect]
     Active Substance: SULFASALAZINE
     Indication: COLITIS ULCERATIVE
     Dosage: UNK
     Route: 065
     Dates: start: 201810
  2. PENTASA [Suspect]
     Active Substance: MESALAMINE
     Indication: COLITIS ULCERATIVE
     Dosage: 2 G, UNK
     Route: 065
     Dates: start: 20170407, end: 201810
  3. PENTASA [Suspect]
     Active Substance: MESALAMINE
     Dosage: 2 G, UNK
     Route: 065
     Dates: start: 20181109

REACTIONS (5)
  - Abdominal discomfort [Unknown]
  - Drug reaction with eosinophilia and systemic symptoms [Unknown]
  - Exposure during pregnancy [Unknown]
  - Rash [Unknown]
  - Transaminases abnormal [Unknown]

NARRATIVE: CASE EVENT DATE: 20181007
